FAERS Safety Report 7691247 (Version 2)
Quarter: 2013Q2

REPORT INFORMATION
  Report Type: Spontaneous
  Country: US (occurrence: US)
  Receive Date: 20101203
  Receipt Date: 20130430
  Transmission Date: 20140414
  Serious: Yes (Other)
  Sender: FDA-Public Use
  Company Number: US-ROCHE-722943

PATIENT
  Sex: Male
  Weight: 86.2 kg

DRUGS (4)
  1. ACCUTANE [Suspect]
     Indication: ACNE
     Route: 065
  2. ACCUTANE [Suspect]
     Route: 065
  3. ACCUTANE [Suspect]
     Route: 065
  4. ACCUTANE [Suspect]
     Route: 065
     Dates: start: 19920324, end: 199211

REACTIONS (10)
  - Gastrointestinal injury [Unknown]
  - Colitis ulcerative [Unknown]
  - Crohn^s disease [Unknown]
  - Inflammatory bowel disease [Unknown]
  - Depression [Unknown]
  - Suicidal ideation [Unknown]
  - Night blindness [Unknown]
  - Dry skin [Unknown]
  - Alopecia [Unknown]
  - Irritable bowel syndrome [Unknown]
